FAERS Safety Report 11666315 (Version 7)
Quarter: 2015Q4

REPORT INFORMATION
  Report Type: Spontaneous
  Country: US (occurrence: US)
  Receive Date: 20151027
  Receipt Date: 20151130
  Transmission Date: 20160304
  Serious: Yes (Hospitalization)
  Sender: FDA-Public Use
  Company Number: US-VERTEX PHARMACEUTICALS-2015-004744

PATIENT
  Age: 24 Year
  Sex: Female

DRUGS (14)
  1. VITAMIN D [Concomitant]
     Active Substance: CHOLECALCIFEROL
  2. RITUXAN [Suspect]
     Active Substance: RITUXIMAB
     Route: 065
  3. ORKAMBI [Suspect]
     Active Substance: IVACAFTOR\LUMACAFTOR
     Dosage: UNK
     Route: 048
     Dates: start: 20151029
  4. PULMOZYME [Concomitant]
     Active Substance: DORNASE ALFA
  5. SALINE ORAL OTC [Concomitant]
     Active Substance: SODIUM CHLORIDE
  6. AZITHROMYCIN [Concomitant]
     Active Substance: AZITHROMYCIN ANHYDROUS
  7. CREON [Concomitant]
     Active Substance: PANCRELIPASE AMYLASE\PANCRELIPASE LIPASE\PANCRELIPASE PROTEASE
  8. FAMOTIDINE. [Concomitant]
     Active Substance: FAMOTIDINE
  9. PREDNISONE. [Concomitant]
     Active Substance: PREDNISONE
  10. ORKAMBI [Suspect]
     Active Substance: IVACAFTOR\LUMACAFTOR
     Indication: CYSTIC FIBROSIS
     Dosage: 400-250 MG, BID
     Route: 048
     Dates: start: 20150925, end: 20151023
  11. CALCIUM [Concomitant]
     Active Substance: CALCIUM
  12. MULTIVITAMIN [Concomitant]
     Active Substance: VITAMINS
  13. TOBRAMYCIN. [Concomitant]
     Active Substance: TOBRAMYCIN
  14. RITUXIMAB [Concomitant]
     Active Substance: RITUXIMAB
     Indication: HAEMOLYTIC ANAEMIA

REACTIONS (9)
  - Joint swelling [Unknown]
  - Arthralgia [Recovered/Resolved]
  - Joint stiffness [Recovered/Resolved]
  - Cough [Unknown]
  - Urticaria [Unknown]
  - Respiration abnormal [Unknown]
  - Hypersensitivity [Unknown]
  - Pharyngeal oedema [Recovered/Resolved]
  - Rash erythematous [Recovered/Resolved]

NARRATIVE: CASE EVENT DATE: 20151022
